FAERS Safety Report 8763923 (Version 1)
Quarter: 2012Q4

REPORT INFORMATION
  Report Type: 
  Country: GR (occurrence: GR)
  Receive Date: 20120831
  Receipt Date: 20120831
  Transmission Date: 20130627
  Serious: Yes (Hospitalization, Other)
  Sender: FDA-Public Use
  Company Number: GR-ABBOTT-12P-066-0975225-00

PATIENT
  Age: 85 Year
  Sex: Male

DRUGS (7)
  1. TEVETEN [Suspect]
     Indication: HYPERTENSION
     Route: 048
     Dates: end: 20120829
  2. VITAMIN B12 [Concomitant]
     Indication: VITAMIN B12 DEFICIENCY
     Dates: end: 20120829
  3. SOLOSA [Concomitant]
     Indication: DIABETES MELLITUS
     Dates: end: 20120829
  4. ATARAX [Concomitant]
     Indication: SLEEP DISORDER
     Dates: end: 20120829
  5. ACTOS [Concomitant]
     Indication: DIABETES MELLITUS
     Dates: end: 20120829
  6. EFEXOR [Concomitant]
     Indication: DEPRESSION
     Dates: end: 20120829
  7. MINITRAN [Concomitant]
     Indication: DEPRESSION
     Dates: end: 20120829

REACTIONS (7)
  - Renal failure acute [Not Recovered/Not Resolved]
  - Haematuria [Not Recovered/Not Resolved]
  - Lung cancer metastatic [Not Recovered/Not Resolved]
  - Depression [Not Recovered/Not Resolved]
  - Diabetes mellitus [Not Recovered/Not Resolved]
  - Sleep disorder [Not Recovered/Not Resolved]
  - Vitamin B12 deficiency [Not Recovered/Not Resolved]
